FAERS Safety Report 21325999 (Version 1)
Quarter: 2022Q3

REPORT INFORMATION
  Report Type: Spontaneous
  Country: US (occurrence: US)
  Receive Date: 20220913
  Receipt Date: 20220913
  Transmission Date: 20221027
  Serious: Yes (Other)
  Sender: FDA-Public Use
  Company Number: US-STRIDES ARCOLAB LIMITED-2022SP007532

PATIENT
  Age: 8 Year
  Sex: Female

DRUGS (8)
  1. MINOCYCLINE [Suspect]
     Active Substance: MINOCYCLINE HYDROCHLORIDE
     Indication: Annular elastolytic giant cell granuloma
     Dosage: UNK
     Route: 065
  2. MINOCYCLINE [Suspect]
     Active Substance: MINOCYCLINE HYDROCHLORIDE
     Indication: Lymphomatoid papulosis
  3. METHOTREXATE [Suspect]
     Active Substance: METHOTREXATE
     Indication: Lymphomatoid papulosis
     Dosage: UNK
     Route: 065
  4. METHOTREXATE [Suspect]
     Active Substance: METHOTREXATE
     Indication: Annular elastolytic giant cell granuloma
  5. TACROLIMUS [Suspect]
     Active Substance: TACROLIMUS
     Indication: Annular elastolytic giant cell granuloma
     Dosage: UNK
     Route: 065
  6. TACROLIMUS [Suspect]
     Active Substance: TACROLIMUS
     Indication: Lymphomatoid papulosis
  7. HYDROXYCHLOROQUINE [Suspect]
     Active Substance: HYDROXYCHLOROQUINE
     Indication: Annular elastolytic giant cell granuloma
     Dosage: UNK
     Route: 065
  8. HYDROXYCHLOROQUINE [Suspect]
     Active Substance: HYDROXYCHLOROQUINE
     Indication: Lymphomatoid papulosis

REACTIONS (3)
  - Drug ineffective for unapproved indication [Unknown]
  - Therapy partial responder [Unknown]
  - Off label use [Unknown]
